FAERS Safety Report 24579701 (Version 1)
Quarter: 2024Q4

REPORT INFORMATION
  Report Type: Spontaneous
  Country: IN (occurrence: IN)
  Receive Date: 20241105
  Receipt Date: 20241105
  Transmission Date: 20250115
  Serious: Yes (Other)
  Sender: MYLAN
  Company Number: IN-MYLANLABS-2024M1099291

PATIENT
  Age: 59 Year
  Sex: Male

DRUGS (4)
  1. GEMCITABINE [Suspect]
     Active Substance: GEMCITABINE
     Indication: Transitional cell carcinoma
     Dosage: UNK UNK, UNK, 1 G/M2 ON DAY 1 AND DAY 8 REPEATING CYCLE EVERY 21 DAYS
     Route: 042
  2. GEMCITABINE [Suspect]
     Active Substance: GEMCITABINE
     Dosage: UNK UNK, CYCLE
     Route: 042
  3. CISPLATIN [Suspect]
     Active Substance: CISPLATIN
     Indication: Transitional cell carcinoma
     Dosage: 75 MILLIGRAM/SQ. METER, CYCLE, 75 MILLIGRAM/SQ. METER, EQUALLY DIVIDED INTO TWO DOSES ON  DAY 1 AND
     Route: 042
  4. CISPLATIN [Suspect]
     Active Substance: CISPLATIN
     Dosage: UNK,  TREATMENT CONTINUED
     Route: 042

REACTIONS (1)
  - Acute febrile neutrophilic dermatosis [Recovered/Resolved]
